FAERS Safety Report 7891247-0 (Version None)
Quarter: 2011Q4

REPORT INFORMATION
  Report Type: 
  Country: None (occurrence: None)
  Receive Date: 20111103
  Receipt Date: 20110801
  Transmission Date: 20120403
  Serious: No
  Sender: FDA-Public Use
  Company Number: US-AMGEN-USASP2011039122

PATIENT
  Age: 60 Year
  Sex: Female

DRUGS (2)
  1. ENBREL [Suspect]
     Indication: RHEUMATOID ARTHRITIS
     Dosage: 50 MG, QWK
     Dates: start: 20110527
  2. METHOTREXATE [Concomitant]
     Dosage: 7 MG, QWK
     Dates: start: 20101101

REACTIONS (6)
  - ABDOMINAL DISCOMFORT [None]
  - ARTHRALGIA [None]
  - EAR DISCOMFORT [None]
  - HEADACHE [None]
  - DIZZINESS [None]
  - DIZZINESS POSTURAL [None]
